FAERS Safety Report 24076074 (Version 2)
Quarter: 2024Q4

REPORT INFORMATION
  Report Type: Report from Study
  Country: JP (occurrence: JP)
  Receive Date: 20240710
  Receipt Date: 20241121
  Transmission Date: 20250115
  Serious: Yes (Hospitalization)
  Sender: SANOFI AVENTIS
  Company Number: JP-SA-2021SA261698

PATIENT
  Age: 2 Year
  Sex: Male

DRUGS (12)
  1. DUPILUMAB [Suspect]
     Active Substance: DUPILUMAB
     Indication: Dermatitis atopic
     Route: 058
  2. BETAMETHASONE DIPROPIONATE [Concomitant]
     Active Substance: BETAMETHASONE DIPROPIONATE
     Indication: Dermatitis atopic
     Dosage: 1 APPLICATION, BIW
     Route: 061
     Dates: start: 20200625, end: 20230510
  3. BETAMETHASONE DIPROPIONATE [Concomitant]
     Active Substance: BETAMETHASONE DIPROPIONATE
     Dosage: 1 APPLICATION, QW
     Route: 061
     Dates: start: 20230511
  4. GLYCOSAMINOGLYCANS [Concomitant]
     Active Substance: GLYCOSAMINOGLYCANS
     Indication: Dermatitis atopic
     Dosage: 1APPLICATION, QD
     Route: 061
     Dates: start: 20200625
  5. BETAMETHASONE DIPROPIONATE [Concomitant]
     Active Substance: BETAMETHASONE DIPROPIONATE
     Indication: Dermatitis atopic
     Dosage: 1APPLICATION, BIW
     Route: 061
     Dates: start: 20200730, end: 20230510
  6. BETAMETHASONE DIPROPIONATE [Concomitant]
     Active Substance: BETAMETHASONE DIPROPIONATE
     Dosage: 1 APPLICATION, QW
     Route: 061
     Dates: start: 20230511
  7. PROTOPIC [Concomitant]
     Active Substance: TACROLIMUS
     Indication: Dermatitis atopic
     Dosage: 1APPLICATION, QD
     Route: 061
     Dates: start: 20200206
  8. DIFLORASONE DIACETATE [Concomitant]
     Active Substance: DIFLORASONE DIACETATE
     Indication: Dermatitis atopic
     Dosage: 1 APPLICATION, QD
     Route: 061
     Dates: start: 20200813, end: 20240214
  9. DIFLORASONE DIACETATE [Concomitant]
     Active Substance: DIFLORASONE DIACETATE
     Dosage: 1 APPLICATION, QOD
     Route: 061
     Dates: start: 20240215
  10. TRANILAST [Concomitant]
     Active Substance: TRANILAST
     Indication: Dermatitis atopic
     Dosage: 50 MG, BID
     Route: 048
     Dates: start: 20200827, end: 20220922
  11. LEVOCETIRIZINE DIHYDROCHLORIDE [Concomitant]
     Active Substance: LEVOCETIRIZINE DIHYDROCHLORIDE
     Indication: Dermatitis atopic
     Dosage: 2.5 ML, QD
     Route: 048
     Dates: start: 20200305, end: 20220105
  12. PROCATEROL HYDROCHLORIDE [Concomitant]
     Active Substance: PROCATEROL HYDROCHLORIDE
     Indication: Asthma
     Dosage: 5 UG, PRN
     Route: 055
     Dates: start: 202104, end: 20230622

REACTIONS (1)
  - Food allergy [Recovered/Resolved]

NARRATIVE: CASE EVENT DATE: 20210428
